FAERS Safety Report 21851883 (Version 1)
Quarter: 2023Q1

REPORT INFORMATION
  Report Type: Spontaneous
  Country: US (occurrence: US)
  Receive Date: 20230112
  Receipt Date: 20230112
  Transmission Date: 20230418
  Serious: No
  Sender: FDA-Public Use
  Company Number: US-UNITED THERAPEUTICS-UNT-2023-000015

PATIENT
  Age: 81 Year
  Sex: Female
  Weight: 48.98 kg

DRUGS (9)
  1. REMODULIN [Suspect]
     Active Substance: TREPROSTINIL
     Indication: Pulmonary arterial hypertension
     Dosage: 0.003 ?G/KG, (AT A RATE OF 0.001 MG/MIN), CONTINUING
     Route: 041
     Dates: start: 202212
  2. REMODULIN [Suspect]
     Active Substance: TREPROSTINIL
     Dosage: 0.020 ?G/KG, (AT A RATE OF 0.001 MG/MIN), CONTINUING
     Route: 041
     Dates: start: 202212
  3. REMODULIN [Suspect]
     Active Substance: TREPROSTINIL
     Dosage: UNK, CONTINUING
     Route: 041
     Dates: start: 202212, end: 202212
  4. REMODULIN [Suspect]
     Active Substance: TREPROSTINIL
     Indication: Pulmonary arterial hypertension
     Dosage: UNK, (AT A RATE OF 0.001 MG/MIN), CONTINUING
     Route: 041
     Dates: start: 20221214
  5. LANOXIN [Concomitant]
     Active Substance: DIGOXIN
     Indication: Pulmonary arterial hypertension
     Dosage: 125 MCG, QD (EVERY EVENING)
     Route: 048
     Dates: start: 20220505
  6. LANOXIN [Concomitant]
     Active Substance: DIGOXIN
     Indication: Dyspnoea
  7. VITAMINS [Concomitant]
     Active Substance: VITAMINS
     Indication: Product used for unknown indication
     Dosage: UNK, QD
     Route: 048
     Dates: start: 20220909
  8. SILDENAFIL [Concomitant]
     Active Substance: SILDENAFIL
     Indication: Pulmonary arterial hypertension
     Dosage: 20 MG, TID
     Route: 048
     Dates: start: 20221128
  9. TORSEMIDE [Concomitant]
     Active Substance: TORSEMIDE
     Indication: Product used for unknown indication
     Dosage: 20 MG, BID
     Route: 048
     Dates: start: 20221126

REACTIONS (5)
  - Diarrhoea [Unknown]
  - Blood pressure decreased [Unknown]
  - Oxygen consumption increased [Unknown]
  - Jugular vein distension [Unknown]
  - Cardiac murmur [Unknown]

NARRATIVE: CASE EVENT DATE: 20221201
